FAERS Safety Report 7294266-0 (Version None)
Quarter: 2011Q1

REPORT INFORMATION
  Report Type: 
  Country: None (occurrence: None)
  Receive Date: 20110215
  Receipt Date: 20110209
  Transmission Date: 20110831
  Serious: Yes (Hospitalization)
  Sender: FDA-Public Use
  Company Number: US-B.I. PHARMACEUTICALS,INC./RIDGEFIELD-2011-BP-02461BP

PATIENT
  Sex: Male
  Weight: 76.66 kg

DRUGS (9)
  1. DOXAZOSIN [Concomitant]
     Indication: HYPERTENSION
     Dosage: 2 MG
     Route: 048
     Dates: start: 20080101
  2. LISINOPRIL [Concomitant]
     Indication: HYPERTENSION
     Dosage: QD
     Route: 048
     Dates: start: 20021001
  3. HYDROCHLOROTHIAZIDE [Concomitant]
     Indication: HYPERTENSION
     Route: 048
     Dates: start: 19980101
  4. LIPITOR [Concomitant]
     Indication: HYPERLIPIDAEMIA
     Route: 048
     Dates: start: 20021001
  5. METOPROLOL TARTRATE [Concomitant]
     Indication: HYPERTENSION
     Dosage: 200 MG
     Route: 048
     Dates: start: 20070101
  6. VEGF TRAP-EYE [Suspect]
     Indication: MACULAR DEGENERATION
     Dosage: INTRAVITREAL; MASKED (VGFT 0.5MG OR 2.0MG OR RANIBIZUMAB 0.5MG)
     Dates: start: 20090709
  7. VEGF TRAP-EYE [Suspect]
     Dosage: INTRAVITREAL; MASKED (VGFT 0.5MG OR 2.0MG OR RANIBIZUMAB 0.5MG)
     Dates: start: 20090709
  8. AGGRENOX [Suspect]
     Indication: ISCHAEMIC CEREBRAL INFARCTION
     Dosage: 25MG/200MG BID
     Route: 048
     Dates: start: 20100208, end: 20110104
  9. AMLODIPINE [Concomitant]
     Indication: HYPERTENSION
     Dosage: 10 MG
     Route: 048
     Dates: start: 20080301

REACTIONS (8)
  - OEDEMA [None]
  - RENAL FAILURE ACUTE [None]
  - HYPOTENSION [None]
  - RASH GENERALISED [None]
  - SINUS BRADYCARDIA [None]
  - DEHYDRATION [None]
  - INFARCTION [None]
  - DIARRHOEA [None]
